FAERS Safety Report 16790534 (Version 8)
Quarter: 2022Q1

REPORT INFORMATION
  Report Type: Spontaneous
  Country: US (occurrence: US)
  Receive Date: 20190910
  Receipt Date: 20220204
  Transmission Date: 20220423
  Serious: No
  Sender: FDA-Public Use
  Company Number: US-PFIZER INC-2018211595

PATIENT
  Age: 66 Year
  Sex: Female
  Weight: 49 kg

DRUGS (4)
  1. LYRICA [Suspect]
     Active Substance: PREGABALIN
     Indication: Lumbar spinal stenosis
     Dosage: 100 MG
     Route: 048
  2. LYRICA [Suspect]
     Active Substance: PREGABALIN
     Indication: Cervical spinal stenosis
     Dosage: 100 MG, 3X/DAY
     Route: 048
  3. LYRICA [Suspect]
     Active Substance: PREGABALIN
     Indication: Pain
     Dosage: 100 MG, 2X/DAY
     Route: 048
     Dates: start: 201609
  4. LYRICA [Suspect]
     Active Substance: PREGABALIN
     Dosage: 100 MG, 3X/DAY

REACTIONS (2)
  - Dysgraphia [Unknown]
  - Cough [Unknown]
